FAERS Safety Report 17165825 (Version 1)
Quarter: 2019Q4

REPORT INFORMATION
  Report Type: Spontaneous
  Country: SE (occurrence: SE)
  Receive Date: 20191217
  Receipt Date: 20191217
  Transmission Date: 20200122
  Serious: Yes (Death, Other)
  Sender: FDA-Public Use
  Company Number: SE-ASTRAZENECA-2019SF76667

PATIENT
  Age: 32438 Day
  Sex: Male

DRUGS (2)
  1. BRILIQUE [Suspect]
     Active Substance: TICAGRELOR
     Indication: STENT PLACEMENT
     Dosage: 180.0MG UNKNOWN
     Route: 048
     Dates: start: 20161224, end: 20171027
  2. BRILIQUE [Suspect]
     Active Substance: TICAGRELOR
     Indication: MYOCARDIAL INFARCTION
     Dosage: 180.0MG UNKNOWN
     Route: 048
     Dates: start: 20161224, end: 20171027

REACTIONS (10)
  - Intestinal haemorrhage [Unknown]
  - Haemoglobin decreased [Unknown]
  - Death [Fatal]
  - Haemorrhagic stroke [Unknown]
  - Wound haemorrhage [Unknown]
  - Cerebrovascular accident [Unknown]
  - Gastric ulcer [Unknown]
  - Melaena [Unknown]
  - Epistaxis [Unknown]
  - Haematuria [Unknown]

NARRATIVE: CASE EVENT DATE: 20170103
